FAERS Safety Report 10695796 (Version 1)
Quarter: 2015Q1

REPORT INFORMATION
  Report Type: Spontaneous
  Country: FR (occurrence: None)
  Receive Date: 20150105
  Receipt Date: 20150105
  Transmission Date: 20150721
  Serious: Yes (Other)
  Sender: FDA-Public Use
  Company Number: 2014JUB00231

PATIENT

DRUGS (4)
  1. MYCOPHENDATE MOFETIL (MYCOPHENOLATE MOFETIL) [Concomitant]
  2. CYCLOSPORINE (CYCLOSPORINE) [Concomitant]
  3. ANTI-T-LYMPHOCYTE GLOBULINS FRESNIUS (ANTI T-LYMPHOCYTE GLOBULINS FRESNIUS) [Concomitant]
  4. METHYLPREDISOLONE [Suspect]
     Active Substance: METHYLPREDNISOLONE
     Indication: IMMUNOSUPPRESSION

REACTIONS (1)
  - Post transplant lymphoproliferative disorder [None]
